FAERS Safety Report 24721823 (Version 2)
Quarter: 2024Q4

REPORT INFORMATION
  Report Type: Spontaneous
  Country: IL (occurrence: IL)
  Receive Date: 20241211
  Receipt Date: 20241231
  Transmission Date: 20250114
  Serious: Yes (Other)
  Sender: TEVA
  Company Number: IL-TEVA-VS-3273127

PATIENT
  Age: 55 Year
  Sex: Male

DRUGS (3)
  1. ETORICOXIB [Suspect]
     Active Substance: ETORICOXIB
     Indication: Back pain
     Route: 065
  2. RAMIPRIL [Suspect]
     Active Substance: RAMIPRIL
     Indication: Hypertension
     Route: 065
  3. AMLODIPINE [Suspect]
     Active Substance: AMLODIPINE BESYLATE
     Indication: Hypertension
     Route: 065

REACTIONS (1)
  - Nephropathy toxic [Recovered/Resolved]
